FAERS Safety Report 8614389-0 (Version None)
Quarter: 2012Q3

REPORT INFORMATION
  Report Type: 
  Country: None (occurrence: None)
  Receive Date: 20120823
  Receipt Date: 20120809
  Transmission Date: 20120928
  Serious: Yes (Other)
  Sender: FDA-Public Use
  Company Number: US-TEVA-353006USA

PATIENT
  Sex: Female

DRUGS (1)
  1. NUVIGIL [Suspect]
     Indication: NARCOLEPSY
     Dosage: 150 MILLIGRAM DAILY;
     Route: 048
     Dates: start: 20120730, end: 20120731

REACTIONS (5)
  - OROPHARYNGEAL PAIN [None]
  - HEADACHE [None]
  - SWOLLEN TONGUE [None]
  - NAUSEA [None]
  - RASH [None]
